FAERS Safety Report 4974084-6 (Version None)
Quarter: 2006Q1

REPORT INFORMATION
  Report Type: 
  Country: None (occurrence: None)
  Receive Date: 20060215
  Receipt Date: 20051012
  Transmission Date: 20060701
  Serious: No
  Sender: FDA-Public Use
  Company Number: USA0510110706

PATIENT
  Age: 46 Year
  Sex: Male

DRUGS (3)
  1. CIALIS [Suspect]
     Indication: ERECTILE DYSFUNCTION
     Dosage: 20 MG
  2. HUMULIN N [Suspect]
     Indication: DIABETES MELLITUS
     Dosage: 22 U, DAILY (1/D)
  3. HUMALOG [Suspect]
     Indication: DIABETES MELLITUS

REACTIONS (3)
  - DRUG INEFFECTIVE [None]
  - ERECTILE DYSFUNCTION [None]
  - THERAPEUTIC RESPONSE DECREASED [None]
